FAERS Safety Report 5471614-5 (Version None)
Quarter: 2007Q3

REPORT INFORMATION
  Report Type: 
  Country: None (occurrence: None)
  Receive Date: 20070928
  Receipt Date: 20070307
  Transmission Date: 20080115
  Serious: Yes (Other)
  Sender: FDA-Public Use
  Company Number: US-BRISTOL-MYERS SQUIBB COMPANY-13671565

PATIENT
  Age: 69 Year
  Sex: Female

DRUGS (1)
  1. DEFINITY [Suspect]
     Indication: ECHOCARDIOGRAM
     Route: 040
     Dates: start: 20070205, end: 20070205

REACTIONS (3)
  - DYSPNOEA [None]
  - RASH [None]
  - URTICARIA [None]
